FAERS Safety Report 13551089 (Version 1)
Quarter: 2017Q2

REPORT INFORMATION
  Report Type: Spontaneous
  Country: IL (occurrence: IL)
  Receive Date: 20170516
  Receipt Date: 20170516
  Transmission Date: 20170830
  Serious: Yes (Other)
  Sender: FDA-Public Use
  Company Number: IL-CELGENEUS-ISR-2017026931

PATIENT
  Age: 47 Year
  Sex: Female
  Weight: 61 kg

DRUGS (3)
  1. PLAQUENIL [Concomitant]
     Active Substance: HYDROXYCHLOROQUINE SULFATE
     Indication: PYREXIA
     Dosage: 200 MG
     Route: 065
  2. OTEZLA [Suspect]
     Active Substance: APREMILAST
     Indication: PSORIASIS
     Route: 048
     Dates: start: 20161115, end: 20170101
  3. DOXYLINE [Concomitant]
     Active Substance: DOXYCYCLINE HYDROCHLORIDE
     Indication: PYREXIA
     Dosage: 100 MG
     Route: 065

REACTIONS (7)
  - Drug ineffective [Unknown]
  - Vomiting [Recovered/Resolved]
  - Depression [Recovered/Resolved]
  - Depressed mood [Unknown]
  - Affective disorder [Recovered/Resolved]
  - Nausea [Recovered/Resolved]
  - Diarrhoea [Unknown]

NARRATIVE: CASE EVENT DATE: 20161220
